FAERS Safety Report 18304078 (Version 2)
Quarter: 2021Q3

REPORT INFORMATION
  Report Type: Spontaneous
  Country: US (occurrence: US)
  Receive Date: 20200923
  Receipt Date: 20210826
  Transmission Date: 20211014
  Serious: No
  Sender: FDA-Public Use
  Company Number: US-SA-2020SA259980

PATIENT
  Age: 33 Year
  Sex: Female

DRUGS (2)
  1. DUPIXENT [Suspect]
     Active Substance: DUPILUMAB
     Indication: ILLNESS
     Dosage: 200 MG, QOW
     Route: 058
     Dates: start: 2020
  2. DUPIXENT [Suspect]
     Active Substance: DUPILUMAB
     Indication: DERMATITIS ATOPIC
     Dosage: 400 MG, 1X
     Route: 058
     Dates: start: 202009, end: 202009

REACTIONS (2)
  - Product use issue [Unknown]
  - Unevaluable event [Unknown]

NARRATIVE: CASE EVENT DATE: 202009
